FAERS Safety Report 9192154 (Version 1)
Quarter: 2013Q1

REPORT INFORMATION
  Report Type: Spontaneous
  Country: US (occurrence: None)
  Receive Date: 20130326
  Receipt Date: 20130326
  Transmission Date: 20140127
  Serious: Yes (Other)
  Sender: FDA-Public Use
  Company Number: None

PATIENT
  Age: 49 Year
  Sex: Female
  Weight: 65.32 kg

DRUGS (1)
  1. BIAXIN [Suspect]
     Dosage: 14 D
     Route: 048
     Dates: start: 20130226, end: 20130227

REACTIONS (4)
  - Abdominal pain [None]
  - Abdominal pain [None]
  - Dysgeusia [None]
  - Diarrhoea [None]
